FAERS Safety Report 10507934 (Version 7)
Quarter: 2016Q1

REPORT INFORMATION
  Report Type: Report from Study
  Country: US (occurrence: US)
  Receive Date: 20141009
  Receipt Date: 20160307
  Transmission Date: 20160525
  Serious: Yes (Hospitalization, Other)
  Sender: FDA-Public Use
  Company Number: US-SANOFI-AVENTIS-2013SA049321

PATIENT
  Age: 44 Year
  Sex: Female

DRUGS (4)
  1. AUBAGIO [Suspect]
     Active Substance: TERIFLUNOMIDE
     Indication: MULTIPLE SCLEROSIS
     Route: 048
     Dates: start: 20130208
  2. OMEPRAZOLE. [Concomitant]
     Active Substance: OMEPRAZOLE
  3. ENALAPRIL [Concomitant]
     Active Substance: ENALAPRIL
  4. AMPYRA [Concomitant]
     Active Substance: DALFAMPRIDINE

REACTIONS (12)
  - Urinary tract infection [Recovered/Resolved]
  - Pulmonary thrombosis [Unknown]
  - Diarrhoea [Recovered/Resolved]
  - Thrombosis [Unknown]
  - Abasia [Unknown]
  - Fatigue [Unknown]
  - Fungal infection [Unknown]
  - Dysstasia [Unknown]
  - Mobility decreased [Unknown]
  - Multiple sclerosis relapse [Unknown]
  - Asthenia [Unknown]
  - Hypertension [Unknown]
